FAERS Safety Report 4885857-2 (Version None)
Quarter: 2006Q1

REPORT INFORMATION
  Report Type: 
  Country: None (occurrence: None)
  Receive Date: 20060117
  Receipt Date: 20051230
  Transmission Date: 20060701
  Serious: Yes (Hospitalization)
  Sender: FDA-Public Use
  Company Number: 8013686

PATIENT
  Age: 35 Year
  Sex: Female

DRUGS (2)
  1. THEO-DUR [Suspect]
     Indication: ASTHMA
     Dosage: 200 MG/D PO
     Route: 048
     Dates: start: 19990101
  2. THEO-DUR [Suspect]
     Indication: ASTHMA
     Dosage: 28000 MG ONCE PO
     Route: 048
     Dates: start: 20041125, end: 20041125

REACTIONS (17)
  - BLOOD PRESSURE DECREASED [None]
  - DRUG INEFFECTIVE [None]
  - DRUG TOXICITY [None]
  - ELECTROLYTE IMBALANCE [None]
  - FATIGUE [None]
  - GRAND MAL CONVULSION [None]
  - HAEMODIALYSIS [None]
  - HYPERGLYCAEMIA [None]
  - HYPOKALAEMIA [None]
  - INTENTIONAL OVERDOSE [None]
  - LEUKOCYTOSIS [None]
  - PALPITATIONS [None]
  - RESPIRATORY ALKALOSIS [None]
  - RHABDOMYOLYSIS [None]
  - SINUS TACHYCARDIA [None]
  - SUICIDE ATTEMPT [None]
  - VICTIM OF ABUSE [None]
